FAERS Safety Report 14745436 (Version 1)
Quarter: 2018Q2

REPORT INFORMATION
  Report Type: Report from Study
  Country: JP (occurrence: JP)
  Receive Date: 20180411
  Receipt Date: 20180411
  Transmission Date: 20180711
  Serious: Yes (Hospitalization, Other)
  Sender: FDA-Public Use
  Company Number: JP-BAYER-2014-183302

PATIENT
  Age: 67 Year
  Sex: Female
  Weight: 68 kg

DRUGS (12)
  1. HIRUDOID [Concomitant]
     Active Substance: GLYCOSAMINOGLYCANS
     Indication: DRUG TOXICITY PROPHYLAXIS
     Dosage: UNK
     Route: 061
     Dates: start: 20140516, end: 20140704
  2. HIRUDOID [Concomitant]
     Active Substance: GLYCOSAMINOGLYCANS
     Indication: PALMAR-PLANTAR ERYTHRODYSAESTHESIA SYNDROME
  3. PYDOXAL [Concomitant]
     Active Substance: PYRIDOXAL
     Indication: DRUG TOXICITY PROPHYLAXIS
     Dosage: DAILY DOSE 60 MG
     Route: 048
     Dates: start: 20140516, end: 20140704
  4. WARFARIN [Concomitant]
     Active Substance: WARFARIN
     Indication: THROMBOSIS PROPHYLAXIS
     Dosage: DAILY DOSE 160 MG
     Route: 048
  5. ANTEBATE [Concomitant]
     Active Substance: BETAMETHASONE DIPROPIONATE
     Indication: PALMAR-PLANTAR ERYTHRODYSAESTHESIA SYNDROME
     Dosage: UNK
     Route: 061
     Dates: start: 201405
  6. REGORAFENIB. [Suspect]
     Active Substance: REGORAFENIB
     Indication: COLON CANCER
     Dosage: 160 MG, QD
     Route: 048
     Dates: start: 20140516, end: 20140523
  7. REGORAFENIB. [Suspect]
     Active Substance: REGORAFENIB
     Indication: METASTASES TO LIVER
     Dosage: 120 MG, QD
     Route: 048
     Dates: start: 20140530, end: 20140619
  8. WARFARIN [Concomitant]
     Active Substance: WARFARIN
     Indication: THROMBOSIS PROPHYLAXIS
     Dosage: DAILY DOSE 2 MG
     Route: 048
  9. WARFARIN [Concomitant]
     Active Substance: WARFARIN
     Indication: THROMBOSIS PROPHYLAXIS
     Dosage: DAILY DOSE 40 MG
     Route: 048
  10. WARFARIN [Concomitant]
     Active Substance: WARFARIN
     Indication: THROMBOSIS PROPHYLAXIS
     Dosage: DAILY DOSE 160 MG
     Route: 048
  11. REGORAFENIB. [Suspect]
     Active Substance: REGORAFENIB
     Indication: COLON CANCER
     Dosage: 120 MG, QD
     Route: 048
     Dates: start: 20140628, end: 20140703
  12. PYDOXAL [Concomitant]
     Active Substance: PYRIDOXAL
     Indication: PALMAR-PLANTAR ERYTHRODYSAESTHESIA SYNDROME

REACTIONS (5)
  - Neutropenia [Recovered/Resolved]
  - Palmar-plantar erythrodysaesthesia syndrome [Recovered/Resolved]
  - Large intestine perforation [None]
  - Peritonitis [None]
  - Hepatic function abnormal [Recovered/Resolved]

NARRATIVE: CASE EVENT DATE: 2014
